FAERS Safety Report 4585365-2 (Version None)
Quarter: 2005Q1

REPORT INFORMATION
  Report Type: 
  Country: None (occurrence: None)
  Receive Date: 20050217
  Receipt Date: 20050114
  Transmission Date: 20050727
  Serious: Yes (Other)
  Sender: FDA-Public Use
  Company Number: 200510172JP

PATIENT
  Age: 70 Year
  Sex: Male
  Weight: 65 kg

DRUGS (7)
  1. KETEK [Suspect]
     Indication: BRONCHITIS ACUTE
     Route: 048
     Dates: start: 20041213, end: 20041215
  2. RENIVACE [Concomitant]
     Indication: ESSENTIAL HYPERTENSION
     Dosage: DOSE: 1 TABLET
     Dates: start: 19950501
  3. TENORMIN [Concomitant]
     Indication: ESSENTIAL HYPERTENSION
     Dosage: DOSE: 1 TABLET
     Route: 048
     Dates: start: 19950501
  4. CONIEL [Concomitant]
     Indication: ESSENTIAL HYPERTENSION
     Dosage: DOSE: 1 TABLET
     Route: 048
     Dates: start: 20030924
  5. OLMETEC                                 /GFR/ [Concomitant]
     Indication: ESSENTIAL HYPERTENSION
     Dosage: DOSE: 1TABLETS
     Route: 048
     Dates: start: 20041111
  6. FLUITRAN [Concomitant]
     Indication: ESSENTIAL HYPERTENSION
     Dosage: DOSE: 1 TABLET
     Route: 048
     Dates: start: 20030924
  7. CARDENALIN [Concomitant]
     Indication: ESSENTIAL HYPERTENSION
     Route: 048
     Dates: start: 20030924

REACTIONS (6)
  - BLOOD PRESSURE DECREASED [None]
  - BLOOD PRESSURE SYSTOLIC INCREASED [None]
  - CHROMATOPSIA [None]
  - DIZZINESS [None]
  - FEELING ABNORMAL [None]
  - HEART RATE DECREASED [None]
